FAERS Safety Report 12467390 (Version 1)
Quarter: 2016Q2

REPORT INFORMATION
  Report Type: Spontaneous
  Country: None (occurrence: None)
  Receive Date: 20160614
  Receipt Date: 20160614
  Transmission Date: 20160815
  Serious: No
  Sender: FDA-Public Use
  Company Number: None

PATIENT
  Sex: Male

DRUGS (8)
  1. LEVOTHYROXINE. [Suspect]
     Active Substance: LEVOTHYROXINE
  2. GLIPIZIDE. [Suspect]
     Active Substance: GLIPIZIDE
  3. ATORVASTATIN [Suspect]
     Active Substance: ATORVASTATIN
  4. INVOKANA [Suspect]
     Active Substance: CANAGLIFLOZIN
  5. BABY ASPRIN [Suspect]
     Active Substance: ASPIRIN
  6. LISINOPRIL. [Suspect]
     Active Substance: LISINOPRIL
  7. VICTOZA [Suspect]
     Active Substance: LIRAGLUTIDE
  8. METFORMIN [Suspect]
     Active Substance: METFORMIN HYDROCHLORIDE

REACTIONS (2)
  - Weight decreased [None]
  - Anxiety [None]
